FAERS Safety Report 11130368 (Version 2)
Quarter: 2015Q2

REPORT INFORMATION
  Report Type: Report from Study
  Country: RU (occurrence: RU)
  Receive Date: 20150522
  Receipt Date: 20150527
  Transmission Date: 20150821
  Serious: Yes (Other)
  Sender: FDA-Public Use
  Company Number: RU-ROCHE-1277625

PATIENT

DRUGS (3)
  1. BENDAMUSTINE [Suspect]
     Active Substance: BENDAMUSTINE
     Indication: CHRONIC LYMPHOCYTIC LEUKAEMIA
     Dosage: ON DAYS 1 AND 2, THE DOSES OF BENDAMUSTINE WERE INCREASED FROM 70MG/M2 TO 90MG/M2
     Route: 041
  2. RITUXIMAB [Suspect]
     Active Substance: RITUXIMAB
     Indication: CHRONIC LYMPHOCYTIC LEUKAEMIA
     Dosage: ON DAY 0 OF THE FIRST COURSE (CYCLE 1)
     Route: 041
  3. RITUXIMAB [Suspect]
     Active Substance: RITUXIMAB
     Dosage: ON DAY 1 OF CYCLES2-6
     Route: 041

REACTIONS (7)
  - Thrombocytopenia [Unknown]
  - Infection [Unknown]
  - Neutropenia [Unknown]
  - Hypersensitivity [Unknown]
  - Leukopenia [Unknown]
  - Anaemia [Unknown]
  - Cardiovascular disorder [Unknown]
